FAERS Safety Report 17952872 (Version 1)
Quarter: 2020Q2

REPORT INFORMATION
  Report Type: Spontaneous
  Country: US (occurrence: US)
  Receive Date: 20200627
  Receipt Date: 20200627
  Transmission Date: 20200714
  Serious: No
  Sender: FDA-Public Use
  Company Number: US-BIOGEN-2020BI00891636

PATIENT
  Sex: Female

DRUGS (1)
  1. PLEGRIDY [Suspect]
     Active Substance: PEGINTERFERON BETA-1A
     Indication: MULTIPLE SCLEROSIS
     Dosage: INJECT 1 PREFILLED PEN (125 MCG/0.5ML) SUBCUTANEOUSLY EVERY 14 DAYS
     Route: 058

REACTIONS (2)
  - Influenza like illness [Not Recovered/Not Resolved]
  - Vomiting [Unknown]
